FAERS Safety Report 22625943 (Version 1)
Quarter: 2023Q2

REPORT INFORMATION
  Report Type: Spontaneous
  Country: US (occurrence: US)
  Receive Date: 20230621
  Receipt Date: 20230621
  Transmission Date: 20230722
  Serious: Yes (Other)
  Sender: FDA-Public Use
  Company Number: US-ELI_LILLY_AND_COMPANY-US202306006862

PATIENT
  Age: 69 Year
  Sex: Female

DRUGS (9)
  1. CYMBALTA [Suspect]
     Active Substance: DULOXETINE HYDROCHLORIDE
     Indication: Depression
     Dosage: 30 MG, DAILY
     Route: 065
     Dates: start: 201909
  2. CYMBALTA [Suspect]
     Active Substance: DULOXETINE HYDROCHLORIDE
     Dosage: 60 MG, DAILY
     Route: 065
     Dates: start: 201911
  3. CYMBALTA [Suspect]
     Active Substance: DULOXETINE HYDROCHLORIDE
     Dosage: 120 MG, DAILY
     Route: 065
     Dates: start: 201912
  4. GABAPENTIN [Concomitant]
     Active Substance: GABAPENTIN
     Indication: Product used for unknown indication
     Dosage: 300 MG, BID
  5. AROMASIN [Concomitant]
     Active Substance: EXEMESTANE
     Indication: Product used for unknown indication
     Dosage: UNK
     Dates: start: 201911, end: 202006
  6. ARIMIDEX [Concomitant]
     Active Substance: ANASTROZOLE
     Indication: Product used for unknown indication
     Dosage: UNK
     Dates: start: 202008
  7. TAMOXIFEN [Concomitant]
     Active Substance: TAMOXIFEN
     Indication: Product used for unknown indication
     Dosage: UNK
     Dates: start: 2020
  8. TAMOXIFEN [Concomitant]
     Active Substance: TAMOXIFEN
     Dosage: UNK
     Dates: start: 202106
  9. ZOMETA [Concomitant]
     Active Substance: ZOLEDRONIC ACID
     Indication: Osteoporosis
     Dosage: UNK, MONTHLY (1/M)
     Dates: start: 20230524

REACTIONS (9)
  - Breast cancer metastatic [Unknown]
  - Fatigue [Recovered/Resolved]
  - Pain in extremity [Recovered/Resolved]
  - Hot flush [Recovered/Resolved]
  - Hot flush [Unknown]
  - Pain in extremity [Unknown]
  - Neck pain [Unknown]
  - Arthralgia [Unknown]
  - Pain in extremity [Unknown]

NARRATIVE: CASE EVENT DATE: 20200101
